FAERS Safety Report 7425818-2 (Version None)
Quarter: 2011Q2

REPORT INFORMATION
  Report Type: 
  Country: None (occurrence: None)
  Receive Date: 20110420
  Receipt Date: 20110128
  Transmission Date: 20111010
  Serious: Yes (Other)
  Sender: FDA-Public Use
  Company Number: US-MYLANLABS-2011S1002140

PATIENT
  Sex: Female

DRUGS (1)
  1. DIVALPROEX SODIUM EXTENDED RELEASE [Suspect]

REACTIONS (1)
  - CONVULSION [None]
